FAERS Safety Report 4774668-4 (Version None)
Quarter: 2005Q3

REPORT INFORMATION
  Report Type: 
  Country: None (occurrence: None)
  Receive Date: 20050914
  Receipt Date: 20050406
  Transmission Date: 20060218
  Serious: Yes (Hospitalization)
  Sender: FDA-Public Use
  Company Number: 163-20785-05040083

PATIENT
  Age: 66 Year
  Sex: Male
  Weight: 71.82 kg

DRUGS (4)
  1. THALOMID [Suspect]
     Indication: NON-SMALL CELL LUNG CANCER
     Dosage: 200MG QD TITRATED 100MG WEEKLY UP TO 100MG ORAL
     Route: 048
     Dates: start: 20050114, end: 20050318
  2. PACLITAXEL [Suspect]
     Indication: NON-SMALL CELL LUNG CANCER
     Dosage: 225 MG/M2 IV OVER 3 HRS ON DAY 1 Q21 DAYS X 2; 45 MG/M2 IV OVER 1 HOUR WEEKLY DURING RT
     Route: 042
     Dates: start: 20050114
  3. CARBOPLATIN [Suspect]
     Indication: NON-SMALL CELL LUNG CANCER
     Dosage: AUC=6 IV OVER 15-30 MIN ON DAY 1
     Route: 042
     Dates: start: 20050114
  4. RADIATION THERAPY [Suspect]
     Indication: NON-SMALL CELL LUNG CANCER
     Dosage: 60 GY AT 2.0 GY PER FRACTION OVER 6 WEEKS

REACTIONS (2)
  - DEHYDRATION [None]
  - HYPOTENSION [None]
